FAERS Safety Report 7006333-7 (Version None)
Quarter: 2010Q3

REPORT INFORMATION
  Report Type: 
  Country: None (occurrence: None)
  Receive Date: 20100921
  Receipt Date: 20100908
  Transmission Date: 20110219
  Serious: Yes (Death)
  Sender: FDA-Public Use
  Company Number: GB-WATSON-2010-12423

PATIENT
  Age: 49 Year
  Sex: Male
  Weight: 79 kg

DRUGS (3)
  1. ORPHENADRINE CITRATE (WATSON LABORATORIES) [Suspect]
     Indication: PRODUCT USED FOR UNKNOWN INDICATION
     Dosage: UNK
  2. CLOZAPINE [Suspect]
     Indication: PRODUCT USED FOR UNKNOWN INDICATION
     Dosage: 200 MG, DAILY
  3. QUETIAPINE [Suspect]
     Indication: PRODUCT USED FOR UNKNOWN INDICATION
     Dosage: UNK

REACTIONS (3)
  - ACUTE HEPATIC FAILURE [None]
  - GASTROINTESTINAL HYPOMOTILITY [None]
  - LIVER INJURY [None]
